FAERS Safety Report 23453834 (Version 2)
Quarter: 2024Q1

REPORT INFORMATION
  Report Type: Report from Study
  Country: TW (occurrence: TW)
  Receive Date: 20240129
  Receipt Date: 20240209
  Transmission Date: 20240410
  Serious: Yes (Life-Threatening, Hospitalization, Other)
  Sender: FDA-Public Use
  Company Number: TW-BRISTOL-MYERS SQUIBB COMPANY-2023-189512

PATIENT
  Age: 63 Year
  Sex: Male
  Weight: 62 kg

DRUGS (38)
  1. EMPLICITI [Suspect]
     Active Substance: ELOTUZUMAB
     Indication: Plasma cell myeloma
     Dosage: 15 MIN PRIOR TO ADMINISTRATION OF ELOTUZUMAB ONCE?ONCE
     Route: 042
     Dates: start: 20230913
  2. EMPLICITI [Suspect]
     Active Substance: ELOTUZUMAB
     Dosage: N: NS 250 ML (DOSE: 4.8 MG/ML) KEEP RUN: 167 ML/MIN FOR 90
     Dates: start: 20230913
  3. EMPLICITI [Suspect]
     Active Substance: ELOTUZUMAB
     Dosage: 4TH CYCLE
     Dates: start: 20231023
  4. EMPLICITI [Suspect]
     Active Substance: ELOTUZUMAB
     Dosage: 4TH CYCLE
     Dates: end: 20231109
  5. POMALIDOMIDE [Suspect]
     Active Substance: POMALIDOMIDE
     Indication: Plasma cell myeloma
     Dosage: 4MG 1 PO QN, C10D1=15-DEC-2023
     Route: 048
     Dates: start: 20220505
  6. POMALIDOMIDE [Suspect]
     Active Substance: POMALIDOMIDE
     Dosage: 4MG 1 PO QN,
     Route: 048
     Dates: start: 20230913, end: 20231109
  7. POMALIDOMIDE [Suspect]
     Active Substance: POMALIDOMIDE
     Dosage: C10D1=15-DEC-2023
     Route: 048
     Dates: end: 20231215
  8. DEXAMETHASONE [Suspect]
     Active Substance: DEXAMETHASONE
     Indication: Plasma cell myeloma
     Dates: start: 20230913, end: 20231109
  9. DEXAMETHASONE [Suspect]
     Active Substance: DEXAMETHASONE
     Dosage: C10D1=15-DEC-2023
     Dates: end: 20231215
  10. SULFAMETHOXAZOLE\TRIMETHOPRIM [Concomitant]
     Active Substance: SULFAMETHOXAZOLE\TRIMETHOPRIM
     Indication: Klebsiella bacteraemia
     Route: 048
     Dates: start: 20231110
  11. SULFAMETHOXAZOLE\TRIMETHOPRIM [Concomitant]
     Active Substance: SULFAMETHOXAZOLE\TRIMETHOPRIM
     Indication: Antifungal prophylaxis
  12. BARACLUDE [Concomitant]
     Active Substance: ENTECAVIR
     Indication: Hepatitis B
     Dosage: FREQUENCY: QWAC?1 TAB QWAC PO 28 DAYS
     Route: 048
     Dates: start: 20220506
  13. DOXAZOSIN MESYLATE [Concomitant]
     Active Substance: DOXAZOSIN MESYLATE
     Indication: Hypertension
     Route: 048
     Dates: start: 20230509
  14. ACETAL [ACECLOFENAC] [Concomitant]
     Indication: Plasma cell myeloma
     Route: 048
     Dates: start: 20230508
  15. ATIVAN [Concomitant]
     Active Substance: LORAZEPAM
     Indication: Insomnia
     Route: 048
     Dates: start: 20231217
  16. DORISON [DEXAMETHASONE] [Concomitant]
     Indication: Plasma cell myeloma
     Dosage: 2 TAB QW PO
     Route: 048
     Dates: start: 20230505
  17. DIOVAN [Concomitant]
     Active Substance: VALSARTAN
     Indication: Hypertension
     Route: 048
     Dates: start: 20231116
  18. NIFEDIPINE [Concomitant]
     Active Substance: NIFEDIPINE
     Indication: Hypertension
     Route: 048
     Dates: start: 20231225
  19. LIPITOR [Concomitant]
     Active Substance: ATORVASTATIN CALCIUM
     Indication: Hyperlipidaemia
     Dosage: 0.5 TAB HS PO
     Route: 048
     Dates: start: 20211018
  20. RYZODEG 70/30 [Concomitant]
     Active Substance: INSULIN ASPART\INSULIN DEGLUDEC
     Indication: Diabetes mellitus
     Dosage: 300 U/3 ML /PEN 5 U BIDAC SC
     Route: 058
     Dates: start: 20211018
  21. LINAGLIPTIN [Concomitant]
     Active Substance: LINAGLIPTIN
     Indication: Diabetes mellitus
     Dosage: TRAJENTA F.C. 5 MG/TAB 1 TAB QD PO
     Route: 048
     Dates: start: 20220505
  22. METFORMIN HYDROCHLORIDE [Concomitant]
     Active Substance: METFORMIN HYDROCHLORIDE
     Indication: Diabetes mellitus
     Dosage: 1 TAB BIDAC PO
     Route: 048
     Dates: start: 20220522
  23. NEXIUM I.V. [Concomitant]
     Active Substance: ESOMEPRAZOLE SODIUM
     Indication: Upper gastrointestinal haemorrhage
     Dosage: QDAC
     Route: 048
     Dates: start: 20201111
  24. NEXIUM I.V. [Concomitant]
     Active Substance: ESOMEPRAZOLE SODIUM
     Dosage: QDAC
     Route: 048
     Dates: start: 20231217
  25. FUSIDIC ACID [Concomitant]
     Active Substance: FUSIDIC ACID
     Indication: Wound
     Dosage: 20 MG/GM 15 G/TUBE 1 XX D TID
  26. MIDODRINE [Concomitant]
     Active Substance: MIDODRINE
     Indication: Hypotension
     Dosage: 2.5 MG/TAB
     Route: 048
  27. FEBRIC [Concomitant]
     Indication: Musculoskeletal chest pain
     Dosage: 80MG 0.5 PO QD FOR BILATERAL RIB PAIN
     Route: 048
     Dates: start: 20240115
  28. MYCOSTATIN [Concomitant]
     Active Substance: NYSTATIN
     Indication: Mucosal inflammation
     Dosage: 0.1 MU/1 ML 24 ML/BTL 6 ML PO Q6H
     Route: 048
     Dates: start: 20240113, end: 20240123
  29. PANTOPRAZOLE SODIUM [Concomitant]
     Active Substance: PANTOPRAZOLE SODIUM
     Indication: Upper gastrointestinal haemorrhage
     Dosage: 0.1 MU/1 ML 24 ML/BTL 6 ML PO Q6H
     Route: 042
     Dates: start: 20201105, end: 20201110
  30. PANTOPRAZOLE SODIUM [Concomitant]
     Active Substance: PANTOPRAZOLE SODIUM
     Dosage: 0.1 MU/1 ML 24 ML/BTL 6 ML PO Q6H
     Route: 042
     Dates: start: 20201030, end: 20201104
  31. LORAZEPAM [Concomitant]
     Active Substance: LORAZEPAM
     Indication: Insomnia
     Dosage: HS
     Route: 048
     Dates: start: 20201201, end: 20240108
  32. DIPHENHYDRAMINE HYDROCHLORIDE [Concomitant]
     Active Substance: DIPHENHYDRAMINE HYDROCHLORIDE
     Dosage: 30 MG/1 ML /AMP 30 MG IV QDPRN
     Route: 042
     Dates: start: 20240116
  33. NINCORT [Concomitant]
     Indication: Mouth ulceration
     Dosage: ORAL GEL 0.1% 6 G/TUBE 1 XX OR BIDPRN
     Route: 048
     Dates: start: 20240118
  34. NINCORT [Concomitant]
     Indication: Tongue ulceration
  35. MEROPENEM [Concomitant]
     Active Substance: MEROPENEM
     Indication: Pain
     Dosage: 250 MG/VIAL
     Route: 042
  36. TRANSAMIN [Concomitant]
     Active Substance: TRANEXAMIC ACID
     Dosage: 250 MG/5 ML /AMP 250 MG IV Q12H
     Route: 042
     Dates: start: 20240113
  37. ACTEIN [Concomitant]
     Indication: Pneumonia
     Dates: start: 20240123
  38. NYSTATIN [Concomitant]
     Active Substance: NYSTATIN
     Indication: Product used for unknown indication
     Dosage: BOT

REACTIONS (36)
  - Anaemia [Not Recovered/Not Resolved]
  - Epistaxis [Unknown]
  - Platelet count decreased [Not Recovered/Not Resolved]
  - White blood cell count decreased [Recovering/Resolving]
  - Thrombosis [Unknown]
  - Prescribed underdose [Unknown]
  - Pneumonia [Recovered/Resolved]
  - Plasma cell myeloma refractory [Unknown]
  - Respiratory failure [Recovered/Resolved]
  - Acute kidney injury [Recovered/Resolved with Sequelae]
  - Hyperkalaemia [Unknown]
  - Hypervolaemia [Unknown]
  - Pyrexia [Recovered/Resolved]
  - Pulmonary oedema [Not Recovered/Not Resolved]
  - Plasma cell myeloma [Recovering/Resolving]
  - End stage renal disease [Unknown]
  - Candida infection [Not Recovered/Not Resolved]
  - Haemangioma of skin [Unknown]
  - Respiratory alkalosis [Unknown]
  - Metabolic acidosis [Unknown]
  - Mucosal inflammation [Not Recovered/Not Resolved]
  - Hypotension [Unknown]
  - Alanine aminotransferase increased [Not Recovered/Not Resolved]
  - Blood alkaline phosphatase increased [Not Recovered/Not Resolved]
  - Aspartate aminotransferase increased [Not Recovered/Not Resolved]
  - Pneumocystis jirovecii pneumonia [Recovered/Resolved]
  - Pneumonia klebsiella [Recovered/Resolved]
  - Herpes simplex reactivation [Recovering/Resolving]
  - Delirium [Recovering/Resolving]
  - Cytomegalovirus infection reactivation [Recovered/Resolved]
  - Respiratory moniliasis [Recovered/Resolved]
  - Upper gastrointestinal haemorrhage [Recovering/Resolving]
  - Neutrophil count decreased [Not Recovered/Not Resolved]
  - Insomnia [Not Recovered/Not Resolved]
  - Pneumonia pseudomonal [Recovered/Resolved]
  - Pneumonia acinetobacter [Recovered/Resolved]

NARRATIVE: CASE EVENT DATE: 20230928
